FAERS Safety Report 7912580-X (Version None)
Quarter: 2011Q4

REPORT INFORMATION
  Report Type: 
  Country: None (occurrence: None)
  Receive Date: 20111114
  Receipt Date: 20111108
  Transmission Date: 20120403
  Serious: Yes (Hospitalization)
  Sender: FDA-Public Use
  Company Number: US-ABBOTT-11P-163-0718019-00

PATIENT
  Sex: Male
  Weight: 93.07 kg

DRUGS (2)
  1. HUMIRA [Suspect]
     Indication: PSORIATIC ARTHROPATHY
     Dates: end: 20110201
  2. ANTIBIOTICS [Concomitant]
     Indication: STAPHYLOCOCCAL INFECTION

REACTIONS (7)
  - STAPHYLOCOCCAL INFECTION [None]
  - PSORIASIS [None]
  - EPISTAXIS [None]
  - PLATELET COUNT DECREASED [None]
  - MUSCLE TWITCHING [None]
  - CONDITION AGGRAVATED [None]
  - MULTIPLE SCLEROSIS [None]
